FAERS Safety Report 6147279-6 (Version None)
Quarter: 2009Q2

REPORT INFORMATION
  Report Type: 
  Country: None (occurrence: None)
  Receive Date: 20090408
  Receipt Date: 20090331
  Transmission Date: 20091009
  Serious: Yes (Other)
  Sender: FDA-Public Use
  Company Number: US-JNJFOC-20090400889

PATIENT
  Age: 48 Year
  Sex: Male

DRUGS (2)
  1. RISPERDAL [Suspect]
     Indication: SCHIZOPHRENIA
     Route: 065
  2. UNSPECIFIED PSYCHIATRIC MEDICATION [Suspect]
     Indication: SCHIZOPHRENIA
     Route: 065

REACTIONS (10)
  - ACTIVITIES OF DAILY LIVING IMPAIRED [None]
  - BLOOD CHOLESTEROL INCREASED [None]
  - CARDIAC DISORDER [None]
  - DIABETES MELLITUS [None]
  - DIABETIC NEUROPATHY [None]
  - FATIGUE [None]
  - LIPIDS INCREASED [None]
  - OBESITY [None]
  - RETINOPATHY [None]
  - SOMNOLENCE [None]
